FAERS Safety Report 6475016-4 (Version None)
Quarter: 2009Q4

REPORT INFORMATION
  Report Type: 
  Country: None (occurrence: None)
  Receive Date: 20091204
  Receipt Date: 20090727
  Transmission Date: 20100525
  Serious: Yes (Other)
  Sender: FDA-Public Use
  Company Number: US-ELI_LILLY_AND_COMPANY-US200903003047

PATIENT
  Sex: Female

DRUGS (24)
  1. BYETTA [Suspect]
     Indication: TYPE 2 DIABETES MELLITUS
     Dosage: 5 UG, 2/D
     Route: 058
     Dates: start: 20070901, end: 20071001
  2. BYETTA [Suspect]
     Dosage: 10 UG, 2/D
     Route: 058
     Dates: start: 20071001, end: 20090401
  3. METFORMIN HCL [Concomitant]
     Indication: TYPE 2 DIABETES MELLITUS
     Dosage: 1000 MG, 2/D
     Dates: start: 20070901, end: 20090301
  4. IMODIUM [Concomitant]
     Dosage: UNK, UNKNOWN
     Dates: start: 20040501
  5. HYTRIN [Concomitant]
     Indication: HYPERTENSION
     Dosage: 2 MG, DAILY (1/D)
  6. AVAPRO [Concomitant]
     Indication: HYPERTENSION
     Dosage: 150 MG, DAILY (1/D)
  7. POTASSIUM CHLORIDE [Concomitant]
     Indication: BLOOD POTASSIUM DECREASED
     Dosage: 8 MG, DAILY (1/D)
  8. TENORETIC 100 [Concomitant]
     Indication: HYPERTENSION
     Dosage: 50 MG, DAILY (1/D)
  9. CYTOTEC [Concomitant]
     Dosage: UNK, DAILY (1/D)
  10. NEXIUM [Concomitant]
     Dosage: 40 MG, DAILY (1/D)
  11. LASIX [Concomitant]
     Indication: HYPERTENSION
     Dosage: 20 MG, UNKNOWN
  12. BIOPLEX [Concomitant]
     Dosage: UNK, DAILY (1/D)
  13. M.V.I. [Concomitant]
     Dosage: UNK, DAILY (1/D)
  14. EXELON [Concomitant]
     Dosage: UNK, AS NEEDED
  15. ADVIL LIQUI-GELS [Concomitant]
     Dosage: UNK, AS NEEDED
  16. TYLENOL W/ CODEINE [Concomitant]
     Dosage: UNK, AS NEEDED
  17. SKELAXIN [Concomitant]
     Indication: PAIN
     Dosage: 400 MG, AS NEEDED
  18. TYLENOL                                 /SCH/ [Concomitant]
     Indication: PAIN
     Dosage: UNK, AS NEEDED
  19. BEN GAY [Concomitant]
     Indication: PAIN
     Dosage: UNK, AS NEEDED
  20. AMARYL [Concomitant]
     Dosage: 4 MG, EACH EVENING
     Dates: start: 20070701, end: 20080731
  21. LIPITOR [Concomitant]
     Indication: HYPERLIPIDAEMIA
     Dosage: 10 MG, DAILY (1/D)
     Dates: start: 20071101
  22. FIBERCON [Concomitant]
     Dosage: UNK, 2/D
     Dates: start: 20090101
  23. LESCOL [Concomitant]
     Indication: HYPERLIPIDAEMIA
     Dosage: UNK, UNKNOWN
  24. CALCIUM [Concomitant]
     Dosage: UNK, UNKNOWN

REACTIONS (8)
  - DEHYDRATION [None]
  - DIARRHOEA [None]
  - DUODENAL ULCER [None]
  - HIATUS HERNIA [None]
  - INTESTINAL MASS [None]
  - NAUSEA [None]
  - OFF LABEL USE [None]
  - POLYP [None]
